FAERS Safety Report 8415940-6 (Version None)
Quarter: 2012Q2

REPORT INFORMATION
  Report Type: 
  Country: None (occurrence: None)
  Receive Date: 20120606
  Receipt Date: 20120531
  Transmission Date: 20120825
  Serious: Yes (Hospitalization)
  Sender: FDA-Public Use
  Company Number: US-B.I. PHARMACEUTICALS,INC./RIDGEFIELD-2012-BP-12791BP

PATIENT
  Sex: Male

DRUGS (3)
  1. ACE INHIBITOR/HCTZ [Concomitant]
     Indication: HYPERTENSION
     Dates: end: 20120501
  2. PRADAXA [Suspect]
     Indication: CEREBROVASCULAR ACCIDENT PROPHYLAXIS
     Dosage: 300 MG
     Route: 048
     Dates: start: 20120501, end: 20120501
  3. PRADAXA [Suspect]
     Indication: ATRIAL FIBRILLATION
     Dosage: 300 MG
     Route: 048
     Dates: start: 20120501

REACTIONS (4)
  - ASTHENIA [None]
  - INFLAMMATION [None]
  - HYPONATRAEMIA [None]
  - PAIN IN EXTREMITY [None]
